FAERS Safety Report 20240180 (Version 3)
Quarter: 2022Q1

REPORT INFORMATION
  Report Type: Spontaneous
  Country: US (occurrence: US)
  Receive Date: 20211228
  Receipt Date: 20220204
  Transmission Date: 20220423
  Serious: No
  Sender: FDA-Public Use
  Company Number: US-PHARMING-PHAUS2021000658

PATIENT

DRUGS (12)
  1. RUCONEST [Suspect]
     Active Substance: HUMAN C1-ESTERASE INHIBITOR
     Indication: Hereditary angioedema
     Dosage: 4200 IU, PRN
     Route: 042
     Dates: start: 20200130
  2. EPINEPHRINE [Concomitant]
     Active Substance: EPINEPHRINE
     Indication: Product used for unknown indication
  3. PEPCID                             /00305201/ [Concomitant]
     Indication: Product used for unknown indication
  4. BONJESTA [Concomitant]
     Active Substance: DOXYLAMINE SUCCINATE\PYRIDOXINE HYDROCHLORIDE
     Indication: Product used for unknown indication
  5. ASPIRIN                            /00002701/ [Concomitant]
     Indication: Product used for unknown indication
  6. ZYRTEC                             /00884302/ [Concomitant]
     Indication: Product used for unknown indication
  7. MULTIVITAMINS                      /00116001/ [Concomitant]
     Indication: Product used for unknown indication
  8. PROPRANOLOL [Concomitant]
     Active Substance: PROPRANOLOL HYDROCHLORIDE
     Indication: Product used for unknown indication
  9. VITAMIN C                          /00008001/ [Concomitant]
     Indication: Product used for unknown indication
  10. DESMOPRESSIN [Concomitant]
     Active Substance: DESMOPRESSIN
     Indication: Product used for unknown indication
  11. PHENERGAN                          /00033001/ [Concomitant]
     Indication: Product used for unknown indication
  12. ICATIBANT [Concomitant]
     Active Substance: ICATIBANT ACETATE
     Indication: Product used for unknown indication

REACTIONS (10)
  - Pharyngeal swelling [Unknown]
  - Dyspnoea [Unknown]
  - Abdominal pain upper [Unknown]
  - Abdominal distension [Unknown]
  - Therapeutic product effect delayed [Unknown]
  - Stress [Unknown]
  - Fatigue [Unknown]
  - Product use in unapproved indication [Unknown]
  - Feeling abnormal [Unknown]
  - Eye contusion [Unknown]
